FAERS Safety Report 7589811-1 (Version None)
Quarter: 2011Q3

REPORT INFORMATION
  Report Type: 
  Country: None (occurrence: None)
  Receive Date: 20110705
  Receipt Date: 20110628
  Transmission Date: 20111222
  Serious: Yes (Other)
  Sender: FDA-Public Use
  Company Number: GB-ABBOTT-11P-167-0835535-00

PATIENT
  Age: 45 Year
  Sex: Male
  Weight: 89 kg

DRUGS (3)
  1. ATRIPLA [Concomitant]
     Indication: PRODUCT USED FOR UNKNOWN INDICATION
     Dates: start: 20090318
  2. AGOMELATINE [Concomitant]
     Indication: DEPRESSION
     Dates: start: 20110401
  3. HUMIRA [Suspect]
     Indication: SPONDYLOARTHROPATHY
     Route: 058
     Dates: start: 20110201, end: 20110501

REACTIONS (1)
  - VIRAL LOAD INCREASED [None]
